FAERS Safety Report 18319034 (Version 1)
Quarter: 2020Q3

REPORT INFORMATION
  Report Type: Other
  Country: GB (occurrence: GB)
  Receive Date: 20200928
  Receipt Date: 20200928
  Transmission Date: 20201103
  Serious: Yes (Other)
  Sender: FDA-Public Use
  Company Number: GB-NAVINTA LLC-000097

PATIENT

DRUGS (3)
  1. INDOMETACIN [Suspect]
     Active Substance: INDOMETHACIN
     Indication: TRICUSPID VALVE DISEASE
  2. INDOMETACIN [Suspect]
     Active Substance: INDOMETHACIN
     Indication: TRICUSPID VALVE DISEASE
     Dosage: MATERNAL INDOMETHACIN 100MG THREE TIMES A DAY
     Route: 065
  3. IBUPROFEN. [Concomitant]
     Active Substance: IBUPROFEN
     Indication: PRODUCT USED FOR UNKNOWN INDICATION
     Dosage: 200MG TDS, AT 24+6 WEEKS

REACTIONS (4)
  - Foetal growth restriction [Unknown]
  - Foetal growth abnormality [Unknown]
  - Off label use [Unknown]
  - Oligohydramnios [Unknown]
